FAERS Safety Report 7795253-6 (Version None)
Quarter: 2011Q4

REPORT INFORMATION
  Report Type: 
  Country: None (occurrence: None)
  Receive Date: 20111004
  Receipt Date: 20110926
  Transmission Date: 20120403
  Serious: Yes (Other)
  Sender: FDA-Public Use
  Company Number: US-AMGEN-USASP2011048798

PATIENT
  Age: 54 Year
  Sex: Female

DRUGS (8)
  1. ENBREL [Suspect]
     Indication: RHEUMATOID ARTHRITIS
     Dosage: 50 MG, Q2WK
  2. TOPAMAX [Concomitant]
  3. SIMVASTATIN [Concomitant]
  4. TRILEPTAL [Concomitant]
  5. PLAVIX [Concomitant]
  6. ENBREL [Suspect]
  7. ASPIRIN [Concomitant]
  8. METOPROLOL TARTRATE [Concomitant]

REACTIONS (2)
  - LUPUS-LIKE SYNDROME [None]
  - SYSTEMIC LUPUS ERYTHEMATOSUS [None]
